FAERS Safety Report 9439736 (Version 1)
Quarter: 2013Q3

REPORT INFORMATION
  Report Type: Spontaneous
  Country: US (occurrence: None)
  Receive Date: 20130802
  Receipt Date: 20130802
  Transmission Date: 20140515
  Serious: Yes (Other)
  Sender: FDA-Public Use
  Company Number: None

PATIENT
  Sex: Male

DRUGS (2)
  1. OLANZAPINE [Suspect]
     Route: 048
  2. OLANZAPINE 10 MG TABLETS [Suspect]
     Dosage: 10 MG (1) HS ORAL
     Route: 048

REACTIONS (3)
  - Abnormal behaviour [None]
  - Product substitution issue [None]
  - Drug ineffective [None]
